FAERS Safety Report 25317992 (Version 1)
Quarter: 2025Q2

REPORT INFORMATION
  Report Type: Spontaneous
  Country: US (occurrence: US)
  Receive Date: 20250515
  Receipt Date: 20250515
  Transmission Date: 20250717
  Serious: Yes (Hospitalization)
  Sender: CSL BEHRING
  Company Number: US-BEH-2025204450

PATIENT
  Sex: Female

DRUGS (18)
  1. HIZENTRA [Suspect]
     Active Substance: HUMAN IMMUNOGLOBULIN G
     Indication: IgG deficiency
     Dosage: 10 G, QW
     Route: 058
     Dates: start: 20241022
  2. AMLODIPINE [Concomitant]
     Active Substance: AMLODIPINE BESYLATE
  3. AZITHROMYCIN [Concomitant]
     Active Substance: AZITHROMYCIN
  4. BOTOX [Concomitant]
     Active Substance: ONABOTULINUMTOXINA
  5. CEPHALEXIN [Concomitant]
     Active Substance: CEPHALEXIN
  6. CIPRO [Concomitant]
     Active Substance: CIPROFLOXACIN HYDROCHLORIDE
  7. CORLANOR [Concomitant]
     Active Substance: IVABRADINE HYDROCHLORIDE
  8. DEXAMETHASONE [Concomitant]
     Active Substance: DEXAMETHASONE
  9. DOXYCYCLINE [Concomitant]
     Active Substance: DOXYCYCLINE
  10. FUROSEMIDE [Concomitant]
     Active Substance: FUROSEMIDE
  11. A-HYDROCORT [Concomitant]
     Active Substance: HYDROCORTISONE SODIUM SUCCINATE
  12. KENALOG [Concomitant]
     Active Substance: TRIAMCINOLONE ACETONIDE
  13. LIDOCAINE\PRILOCAINE [Concomitant]
     Active Substance: LIDOCAINE\PRILOCAINE
  14. LOSARTAN POTASSIUM [Concomitant]
     Active Substance: LOSARTAN POTASSIUM
  15. METHYLPREDNISOLONE [Concomitant]
     Active Substance: METHYLPREDNISOLONE
  16. OSELTAMIVIR [Concomitant]
     Active Substance: OSELTAMIVIR
  17. TYLENOL [Concomitant]
     Active Substance: ACETAMINOPHEN
  18. XARELTO [Concomitant]
     Active Substance: RIVAROXABAN

REACTIONS (3)
  - Cellulitis [Recovered/Resolved]
  - Osteomyelitis [Recovered/Resolved]
  - Product dose omission issue [Not Recovered/Not Resolved]
